FAERS Safety Report 6574383-0 (Version None)
Quarter: 2010Q1

REPORT INFORMATION
  Report Type: 
  Country: None (occurrence: None)
  Receive Date: 20100208
  Receipt Date: 20100129
  Transmission Date: 20100710
  Serious: Yes (Hospitalization)
  Sender: FDA-Public Use
  Company Number: CA-ABBOTT-10P-028-0623490-00

PATIENT
  Sex: Female
  Weight: 59.02 kg

DRUGS (21)
  1. HUMIRA [Suspect]
     Indication: PSORIATIC ARTHROPATHY
     Route: 058
     Dates: start: 20090803
  2. RITALIN [Concomitant]
     Indication: HYPERSOMNIA
     Dosage: 1 TABLET IN MORNING, LUNCH, AND DINNER
  3. FLORINEF [Concomitant]
     Indication: DRUG USE FOR UNKNOWN INDICATION
     Dosage: 1 TABLET IN THE MORNING
  4. CORTISONE [Concomitant]
     Indication: ADRENAL INSUFFICIENCY
     Dosage: 1/2 TABLET MORNING AND DINNER
  5. BOTOX [Concomitant]
     Indication: PAIN
  6. METADOL [Concomitant]
     Indication: PAIN
     Dosage: 1.5 TABLETS EACH MORNING AND DINNER
  7. CLONIDINE [Concomitant]
     Indication: DRUG USE FOR UNKNOWN INDICATION
     Dosage: 1 TAB AT LUNCH, DINNER 2 TABS AT BEDTIME
  8. EFFEXOR XR [Concomitant]
     Indication: DEPRESSION
     Dosage: 2 TABLETS AT BEDTIME
  9. REMERON [Concomitant]
     Indication: DEPRESSION
     Dosage: ONE TABLET AT BEDTIME
  10. VALIUM [Concomitant]
     Indication: DRUG USE FOR UNKNOWN INDICATION
     Dosage: 1 TABLET MORNING, LUNCH, AND DINNER
  11. NEURONTIN [Concomitant]
     Indication: DRUG USE FOR UNKNOWN INDICATION
     Dosage: 1TAB MORNING, LUNCH AND 2TABS AT DINNER
  12. APO-FOLIC [Concomitant]
     Indication: DRUG USE FOR UNKNOWN INDICATION
     Dosage: 1 TAB EACH MORNING EXCEPT TUESDAY
  13. DICAL D [Concomitant]
     Indication: MENOPAUSE
     Dosage: 1 TABLET AT LUNCH AND BEDTIME
  14. PHYTO SOYA [Concomitant]
     Indication: MENOPAUSE
     Dosage: 1 TABLET AT LUNCH AND BEDTIME
  15. FERROUS SULFATE TAB [Concomitant]
     Indication: ANAEMIA
     Dosage: 1 TABLET IN MORNING AND DINNER
  16. PANTOPRAZOLE [Concomitant]
     Indication: GASTRITIS EROSIVE
     Dosage: 1 TABLET EACH MORNING
  17. NORVASC [Concomitant]
     Indication: DRUG USE FOR UNKNOWN INDICATION
     Dosage: AT BEDTIME
  18. AVAPRO [Concomitant]
     Indication: HYPERTENSION
     Dosage: 1 TABLET IN THE MORNING
  19. DOCUSATE CALCIUM [Concomitant]
     Indication: DRUG USE FOR UNKNOWN INDICATION
     Dosage: 2 AS NEEDED
  20. SENNOSIDES [Concomitant]
     Indication: DRUG USE FOR UNKNOWN INDICATION
  21. MOMETASONE FUROATE [Concomitant]
     Indication: DRUG USE FOR UNKNOWN INDICATION
     Dosage: DAILY

REACTIONS (5)
  - ANGINA PECTORIS [None]
  - BLOOD PRESSURE INCREASED [None]
  - CHEST PAIN [None]
  - HEART RATE INCREASED [None]
  - SENSORY DISTURBANCE [None]
